FAERS Safety Report 19477361 (Version 1)
Quarter: 2021Q2

REPORT INFORMATION
  Report Type: Spontaneous
  Country: US (occurrence: US)
  Receive Date: 20210630
  Receipt Date: 20210630
  Transmission Date: 20210717
  Serious: No
  Sender: FDA-Public Use
  Company Number: None

PATIENT
  Age: 38 Year
  Sex: Male
  Weight: 98 kg

DRUGS (1)
  1. CASIRIVIMAB/IMDEVIMAB (EUA) (CASIRIVIMAB 1200MG/IMDEVIMAB 1200MG (EUA)) [Suspect]
     Active Substance: CASIRIVIMAB\IMDEVIMAB
     Indication: SARS-COV-2 TEST POSITIVE
     Dosage: ?          OTHER DOSE:600/600MG;?
     Route: 042
     Dates: start: 20210622, end: 20210622

REACTIONS (4)
  - Confusional state [None]
  - Infusion related reaction [None]
  - Dizziness [None]
  - Chills [None]

NARRATIVE: CASE EVENT DATE: 20210622
